FAERS Safety Report 10013705 (Version 1)
Quarter: 2014Q1

REPORT INFORMATION
  Report Type: Spontaneous
  Country: US (occurrence: US)
  Receive Date: 20140316
  Receipt Date: 20140316
  Transmission Date: 20141002
  Serious: Yes (Other)
  Sender: FDA-Public Use
  Company Number: US-BAYER-2014-033924

PATIENT
  Sex: Female

DRUGS (1)
  1. ALKA-SELTZER FRUIT CHEWS [Suspect]
     Dosage: 1 DF, UNK
     Route: 048

REACTIONS (2)
  - Hypersensitivity [Recovered/Resolved]
  - Choking [Recovered/Resolved]
